FAERS Safety Report 21666465 (Version 2)
Quarter: 2022Q4

REPORT INFORMATION
  Report Type: Spontaneous
  Country: US (occurrence: US)
  Receive Date: 20221201
  Receipt Date: 20221215
  Transmission Date: 20230113
  Serious: Yes (Life-Threatening, Hospitalization)
  Sender: FDA-Public Use
  Company Number: US-TEVA-2022-US-2830402

PATIENT
  Age: 43 Year
  Sex: Female

DRUGS (8)
  1. NOREPINEPHRINE [Suspect]
     Active Substance: NOREPINEPHRINE
     Indication: Bradycardia
     Dosage: 2880 MICROGRAM DAILY;
     Route: 041
  2. NOREPINEPHRINE [Suspect]
     Active Substance: NOREPINEPHRINE
     Dosage: 7200 MICROGRAM DAILY;
     Route: 041
  3. DEXAMETHASONE [Suspect]
     Active Substance: DEXAMETHASONE
     Indication: COVID-19 pneumonia
     Dosage: DAILY
     Route: 042
  4. REMDESIVIR [Suspect]
     Active Substance: REMDESIVIR
     Indication: COVID-19
     Dosage: LOADING DOSE ON ADMISSION
     Route: 065
  5. REMDESIVIR [Suspect]
     Active Substance: REMDESIVIR
     Route: 065
  6. VANCOMYCIN [Concomitant]
     Active Substance: VANCOMYCIN
     Indication: Evidence based treatment
     Route: 065
  7. CEFEPIME [Concomitant]
     Active Substance: CEFEPIME HYDROCHLORIDE
     Indication: Evidence based treatment
     Route: 065
  8. SALINE [Concomitant]
     Active Substance: SODIUM CHLORIDE
     Indication: Product used for unknown indication
     Dosage: RECEIVED A TOTAL OF 5L NORMAL SALINE
     Route: 065

REACTIONS (4)
  - Bradycardia [Recovered/Resolved]
  - Hypotension [Recovered/Resolved]
  - Drug ineffective [Unknown]
  - Off label use [Unknown]
